FAERS Safety Report 21282502 (Version 1)
Quarter: 2022Q3

REPORT INFORMATION
  Report Type: Spontaneous
  Country: US (occurrence: US)
  Receive Date: 20220901
  Receipt Date: 20220901
  Transmission Date: 20221027
  Serious: No
  Sender: FDA-Public Use
  Company Number: US-ABBVIE-22K-163-4460447-00

PATIENT
  Age: 42 Year
  Sex: Female
  Weight: 99.880 kg

DRUGS (4)
  1. HUMIRA [Suspect]
     Active Substance: ADALIMUMAB
     Indication: Psoriasis
     Route: 058
     Dates: start: 2012
  2. HUMIRA [Suspect]
     Active Substance: ADALIMUMAB
  3. DULOXETINE [Concomitant]
     Active Substance: DULOXETINE
     Indication: Psoriatic arthropathy
  4. DULOXETINE [Concomitant]
     Active Substance: DULOXETINE
     Indication: Pain

REACTIONS (4)
  - Constipation [Not Recovered/Not Resolved]
  - Device difficult to use [Unknown]
  - Visual impairment [Not Recovered/Not Resolved]
  - Hepatic enzyme increased [Unknown]

NARRATIVE: CASE EVENT DATE: 20220201
